FAERS Safety Report 16991169 (Version 1)
Quarter: 2019Q4

REPORT INFORMATION
  Report Type: Spontaneous
  Country: JP (occurrence: JP)
  Receive Date: 20191104
  Receipt Date: 20191104
  Transmission Date: 20200122
  Serious: Yes (Death, Other)
  Sender: FDA-Public Use
  Company Number: JP-NAPPMUNDI-GBR-2019-0072255

PATIENT
  Age: 71 Year
  Sex: Female

DRUGS (6)
  1. OXYNORM [Suspect]
     Active Substance: OXYCODONE HYDROCHLORIDE
     Indication: METASTASES TO BONE
     Dosage: 100 MG, DAILY
     Route: 048
     Dates: start: 20190629, end: 20190718
  2. ZYPREXA [Suspect]
     Active Substance: OLANZAPINE
     Indication: ANXIETY
  3. CYMBALTA [Suspect]
     Active Substance: DULOXETINE HYDROCHLORIDE
     Indication: INSOMNIA
     Dosage: 40 MG, DAILY
     Route: 048
     Dates: start: 20190527, end: 20190702
  4. OXYCONTIN [Suspect]
     Active Substance: OXYCODONE HYDROCHLORIDE
     Indication: METASTASES TO BONE
     Dosage: 200 MG, DAILY
     Route: 048
     Dates: start: 20190326, end: 20190718
  5. CYMBALTA [Suspect]
     Active Substance: DULOXETINE HYDROCHLORIDE
     Indication: ANXIETY
     Dosage: 20 MG, DAILY
     Route: 048
     Dates: start: 20190520, end: 20190526
  6. ZYPREXA [Suspect]
     Active Substance: OLANZAPINE
     Indication: INSOMNIA
     Dosage: 10 MG, DAILY
     Route: 048
     Dates: start: 20190326

REACTIONS (3)
  - Delirium [Fatal]
  - Respiratory failure [Fatal]
  - Dysphagia [Unknown]

NARRATIVE: CASE EVENT DATE: 20190629
